FAERS Safety Report 18292937 (Version 4)
Quarter: 2021Q2

REPORT INFORMATION
  Report Type: Report from Study
  Country: US (occurrence: US)
  Receive Date: 20200922
  Receipt Date: 20210406
  Transmission Date: 20210717
  Serious: Yes (Death, Life-Threatening, Other)
  Sender: FDA-Public Use
  Company Number: NVSC2020US257406

PATIENT
  Age: 17 Year
  Sex: Male
  Weight: 142 kg

DRUGS (28)
  1. ECULIZUMAB [Concomitant]
     Active Substance: ECULIZUMAB
     Indication: PRODUCT USED FOR UNKNOWN INDICATION
     Dosage: 900 MG, 8/14
     Route: 065
     Dates: start: 20200814, end: 20200814
  2. SEPTRA [Concomitant]
     Active Substance: SULFAMETHOXAZOLE\TRIMETHOPRIM
     Indication: PNEUMOCYSTIS JIROVECII PNEUMONIA
     Dosage: UNK
     Route: 065
  3. CYCLOPHOSPHAMIDE. [Concomitant]
     Active Substance: CYCLOPHOSPHAMIDE
     Indication: PRODUCT USED FOR UNKNOWN INDICATION
     Dosage: UNK
     Route: 065
     Dates: start: 20200804, end: 20200804
  4. GRANISETRON [Concomitant]
     Active Substance: GRANISETRON
     Indication: PRODUCT USED FOR UNKNOWN INDICATION
     Dosage: UNK
     Route: 065
     Dates: start: 20200802, end: 20200816
  5. MANNITOL. [Concomitant]
     Active Substance: MANNITOL
     Indication: PRODUCT USED FOR UNKNOWN INDICATION
     Dosage: UNK
     Route: 065
     Dates: start: 20200813, end: 20200813
  6. KYTRIL [Concomitant]
     Active Substance: GRANISETRON HYDROCHLORIDE
     Indication: ANTIEMETIC SUPPORTIVE CARE
     Dosage: UNK
     Route: 065
  7. ESMOLOL [Concomitant]
     Active Substance: ESMOLOL HYDROCHLORIDE
     Indication: PRODUCT USED FOR UNKNOWN INDICATION
     Dosage: UNK
     Route: 065
     Dates: start: 20200813, end: 20200813
  8. FLUOXETINE [Concomitant]
     Active Substance: FLUOXETINE HYDROCHLORIDE
     Indication: PRODUCT USED FOR UNKNOWN INDICATION
     Dosage: UNK
     Route: 065
     Dates: start: 20200802, end: 20200813
  9. KYMRIAH [Suspect]
     Active Substance: TISAGENLECLEUCEL
     Indication: ACUTE LYMPHOCYTIC LEUKAEMIA RECURRENT
     Dosage: UNK, ONCE/SINGLE
     Route: 042
     Dates: start: 20200806, end: 20200806
  10. BENADRYL [Concomitant]
     Active Substance: DIPHENHYDRAMINE HYDROCHLORIDE
     Indication: PRODUCT USED FOR UNKNOWN INDICATION
     Dosage: UNK
     Route: 065
  11. ACETAMINOFEN [Concomitant]
     Active Substance: ACETAMINOPHEN
     Indication: PRODUCT USED FOR UNKNOWN INDICATION
     Dosage: UNK
     Route: 065
     Dates: start: 20200806
  12. LANTUS [Concomitant]
     Active Substance: INSULIN GLARGINE
     Indication: PRODUCT USED FOR UNKNOWN INDICATION
     Dosage: UNK
     Route: 065
  13. NOVOLOG [Concomitant]
     Active Substance: INSULIN ASPART
     Indication: PRODUCT USED FOR UNKNOWN INDICATION
     Dosage: UNK
     Route: 065
  14. ATIVAN [Concomitant]
     Active Substance: LORAZEPAM
     Indication: PRODUCT USED FOR UNKNOWN INDICATION
     Dosage: UNK
     Route: 065
  15. GABAPENTIN. [Concomitant]
     Active Substance: GABAPENTIN
     Indication: PRODUCT USED FOR UNKNOWN INDICATION
     Dosage: UNK
     Route: 065
     Dates: start: 20200802, end: 20200813
  16. METHADONE [Concomitant]
     Active Substance: METHADONE HYDROCHLORIDE
     Indication: PRODUCT USED FOR UNKNOWN INDICATION
     Dosage: UNK
     Route: 065
  17. FLUDARABINE [Concomitant]
     Active Substance: FLUDARABINE PHOSPHATE
     Indication: PRODUCT USED FOR UNKNOWN INDICATION
     Dosage: UNK
     Route: 065
     Dates: start: 20200802, end: 20200804
  18. ACYCLOVIR. [Concomitant]
     Active Substance: ACYCLOVIR
     Indication: PROPHYLAXIS
     Dosage: UNK
     Route: 065
     Dates: start: 20200807, end: 20200813
  19. CEFTRIAXONE. [Concomitant]
     Active Substance: CEFTRIAXONE
     Indication: PRODUCT USED FOR UNKNOWN INDICATION
     Dosage: UNK
     Route: 065
     Dates: start: 20200806, end: 20200808
  20. LEVETIRACETAM. [Concomitant]
     Active Substance: LEVETIRACETAM
     Indication: PRODUCT USED FOR UNKNOWN INDICATION
     Dosage: UNK
     Route: 065
     Dates: start: 20200804
  21. VORICONAZOLE. [Concomitant]
     Active Substance: VORICONAZOLE
     Indication: PRODUCT USED FOR UNKNOWN INDICATION
     Dosage: UNK
     Route: 065
  22. CEFEPIME [Concomitant]
     Active Substance: CEFEPIME HYDROCHLORIDE
     Indication: PRODUCT USED FOR UNKNOWN INDICATION
     Dosage: UNK
     Route: 065
     Dates: start: 20200809
  23. CLONAZEPAM. [Concomitant]
     Active Substance: CLONAZEPAM
     Indication: PRODUCT USED FOR UNKNOWN INDICATION
     Dosage: UNK
     Route: 065
     Dates: start: 20200802, end: 20200813
  24. KEPPRA [Concomitant]
     Active Substance: LEVETIRACETAM
     Indication: SEIZURE PROPHYLAXIS
     Dosage: UNK
     Route: 065
  25. ENOXAPARIN [Concomitant]
     Active Substance: ENOXAPARIN
     Indication: PRODUCT USED FOR UNKNOWN INDICATION
     Dosage: UNK
     Route: 065
     Dates: start: 20200802, end: 20200813
  26. DEXAMETHASONE. [Concomitant]
     Active Substance: DEXAMETHASONE
     Indication: PRODUCT USED FOR UNKNOWN INDICATION
     Dosage: UNK
     Route: 065
     Dates: start: 20200813
  27. INSULIN [Concomitant]
     Active Substance: INSULIN NOS
     Indication: PRODUCT USED FOR UNKNOWN INDICATION
     Dosage: UNK
     Route: 065
     Dates: start: 20200802
  28. METOPROLOL. [Concomitant]
     Active Substance: METOPROLOL
     Indication: PRODUCT USED FOR UNKNOWN INDICATION
     Dosage: UNK
     Route: 065

REACTIONS (75)
  - Hepatic failure [Fatal]
  - Multiple organ dysfunction syndrome [Fatal]
  - Pyrexia [Unknown]
  - Neurotoxicity [Unknown]
  - Hepatic infection bacterial [Unknown]
  - Cerebral ischaemia [Unknown]
  - Hemiparesis [Unknown]
  - Neutropenia [Unknown]
  - Motor dysfunction [Unknown]
  - Inflammation [Unknown]
  - Adjustment disorder with mixed anxiety and depressed mood [Unknown]
  - Blood pressure abnormal [Unknown]
  - Heart rate increased [Unknown]
  - Cardiotoxicity [Unknown]
  - Respiratory failure [Unknown]
  - Immune effector cell-associated neurotoxicity syndrome [Unknown]
  - Cerebral haemorrhage [Unknown]
  - Reticuloendothelial system stimulated [Unknown]
  - Splenomegaly [Unknown]
  - Fluid overload [Unknown]
  - Aphasia [Unknown]
  - Brain injury [Fatal]
  - Nephropathy toxic [Unknown]
  - Cytokine release syndrome [Unknown]
  - Myoclonic epilepsy [Unknown]
  - Depressed level of consciousness [Unknown]
  - Muscle spasms [Unknown]
  - Cardiomegaly [Unknown]
  - Anaemia [Unknown]
  - Pulmonary toxicity [Unknown]
  - Cardiac failure [Unknown]
  - Pancreatitis necrotising [Unknown]
  - Tumour lysis syndrome [Unknown]
  - Enterococcal infection [Unknown]
  - Paraparesis [Unknown]
  - Treatment failure [Unknown]
  - White blood cell count decreased [Unknown]
  - Platelet count decreased [Unknown]
  - Hepatomegaly [Unknown]
  - Hepatic steatosis [Unknown]
  - Somnolence [Unknown]
  - Renal failure [Fatal]
  - Hypoxia [Unknown]
  - Thrombotic microangiopathy [Unknown]
  - Pancreatic fibrosis [Unknown]
  - Lactic acidosis [Unknown]
  - Jaundice [Unknown]
  - Dyskinesia [Unknown]
  - Brain death [Fatal]
  - Cardiac arrest [Fatal]
  - Pleural effusion [Unknown]
  - Adjustment disorder [Unknown]
  - Bacterial infection [Unknown]
  - Serum ferritin increased [Unknown]
  - Dyspnoea [Unknown]
  - Hepatotoxicity [Unknown]
  - Pneumonia [Unknown]
  - Spinal fracture [Unknown]
  - Pulmonary congestion [Unknown]
  - Renal tubular necrosis [Unknown]
  - Hepatic necrosis [Unknown]
  - Back pain [Unknown]
  - Hypotension [Unknown]
  - Brain oedema [Unknown]
  - Cytotoxic oedema [Unknown]
  - Haemophagocytic lymphohistiocytosis [Unknown]
  - Respiratory distress [Unknown]
  - Dystonia [Unknown]
  - Acute kidney injury [Unknown]
  - Acute lymphocytic leukaemia recurrent [Unknown]
  - Haemoglobin decreased [Unknown]
  - Myoclonus [Unknown]
  - Haemodynamic instability [Unknown]
  - Haemosiderosis [Unknown]
  - Supraventricular tachycardia [Unknown]

NARRATIVE: CASE EVENT DATE: 20200810
